FAERS Safety Report 6140740-X (Version None)
Quarter: 2009Q2

REPORT INFORMATION
  Report Type: 
  Country: None (occurrence: None)
  Receive Date: 20090402
  Receipt Date: 20090324
  Transmission Date: 20091009
  Serious: Yes (Other)
  Sender: FDA-Public Use
  Company Number: PHHY2009CO11044

PATIENT
  Age: 84 Year
  Sex: Female

DRUGS (3)
  1. EXELON [Suspect]
     Indication: DEMENTIA
     Dosage: 1 DF, QD
     Route: 062
     Dates: start: 20081105, end: 20081110
  2. EXELON [Suspect]
     Indication: DEMENTIA ALZHEIMER'S TYPE
  3. EXELON [Suspect]
     Indication: VASCULAR DEMENTIA

REACTIONS (2)
  - DECREASED ACTIVITY [None]
  - DELIRIUM [None]
